FAERS Safety Report 23802831 (Version 1)
Quarter: 2024Q2

REPORT INFORMATION
  Report Type: Spontaneous
  Country: AU (occurrence: AU)
  Receive Date: 20240501
  Receipt Date: 20240501
  Transmission Date: 20240716
  Serious: Yes (Hospitalization)
  Sender: FDA-Public Use
  Company Number: AU-TASMAN PHARMA, INC.-2024TSM00182

PATIENT
  Age: 4 Decade
  Sex: Female

DRUGS (9)
  1. CLOZAPINE [Suspect]
     Active Substance: CLOZAPINE
     Indication: Psychotic disorder
     Dosage: 12.5 MG
  2. CLOZAPINE [Suspect]
     Active Substance: CLOZAPINE
     Indication: Schizophrenia
     Dosage: UNSPECIFIED TITRATION
  3. CLOZAPINE [Suspect]
     Active Substance: CLOZAPINE
     Dosage: 200 MG (50 MG IN MORNING AND 150 AT NIGHT)
  4. CLOZAPINE [Suspect]
     Active Substance: CLOZAPINE
     Dosage: 150 MG, 1X/DAY
  5. CLOZAPINE [Suspect]
     Active Substance: CLOZAPINE
     Dosage: 100 MG, 1X/DAY (50 MG 2X/DAY)
  6. CLOZAPINE [Suspect]
     Active Substance: CLOZAPINE
     Dosage: 75 MG, 1X/DAY
  7. CLOZAPINE [Suspect]
     Active Substance: CLOZAPINE
     Dosage: 50 MG, 1X/DAY (25 MG 2X/DAY)
  8. CLOZAPINE [Suspect]
     Active Substance: CLOZAPINE
     Dosage: UNK, WEEKLY TITRATION
  9. CLOZAPINE [Suspect]
     Active Substance: CLOZAPINE
     Dosage: 175 MG, 1X/DAY (50 MG IN THE MORNING AND 125 MG AT NIGHT)

REACTIONS (2)
  - Pneumonitis [Recovered/Resolved]
  - Toxicity to various agents [Recovered/Resolved]
